FAERS Safety Report 9129347 (Version 1)
Quarter: 2013Q1

REPORT INFORMATION
  Report Type: Spontaneous
  Country: US (occurrence: US)
  Receive Date: 20130228
  Receipt Date: 20130228
  Transmission Date: 20140127
  Serious: No
  Sender: FDA-Public Use
  Company Number: US-ABBOTT-12P-163-1019268-00

PATIENT
  Sex: Male
  Weight: 74.91 kg

DRUGS (4)
  1. ANDROGEL [Suspect]
     Indication: BLOOD TESTOSTERONE DECREASED
     Dosage: 2 PUMP ACTUATIONS DAILY TO EACH ARM
     Dates: start: 201111
  2. MICARDIS [Concomitant]
     Indication: HYPERTENSION
  3. PENTOXIFYLLINE [Concomitant]
     Indication: PENIS DISORDER
  4. CIALIS [Concomitant]
     Indication: PRODUCT USED FOR UNKNOWN INDICATION

REACTIONS (1)
  - Blood testosterone decreased [Not Recovered/Not Resolved]
